FAERS Safety Report 22645185 (Version 2)
Quarter: 2023Q2

REPORT INFORMATION
  Report Type: Spontaneous
  Country: UZ (occurrence: None)
  Receive Date: 20230627
  Receipt Date: 20230630
  Transmission Date: 20230722
  Serious: Yes (Other)
  Sender: FDA-Public Use
  Company Number: UZ-ROCHE-3374087

PATIENT

DRUGS (1)
  1. AVASTIN [Suspect]
     Active Substance: BEVACIZUMAB
     Indication: Maculopathy
     Route: 065

REACTIONS (5)
  - Blindness [Unknown]
  - Off label use [Unknown]
  - Product counterfeit [Unknown]
  - Optic neuritis [Unknown]
  - Vasculitis [Unknown]
